FAERS Safety Report 15056802 (Version 1)
Quarter: 2018Q2

REPORT INFORMATION
  Report Type: Spontaneous
  Country: US (occurrence: US)
  Receive Date: 20180604
  Receipt Date: 20180604
  Transmission Date: 20180711
  Serious: Yes (Hospitalization)
  Sender: FDA-Public Use
  Company Number: None

PATIENT
  Age: 69 Year
  Sex: Female

DRUGS (15)
  1. FUROSEMIDE. [Concomitant]
     Active Substance: FUROSEMIDE
  2. CIPROFLOXACN [Concomitant]
     Active Substance: CIPROFLOXACIN
  3. AMLODIPINE [Concomitant]
     Active Substance: AMLODIPINE BESYLATE
  4. OMEPRAZOLE. [Concomitant]
     Active Substance: OMEPRAZOLE
  5. POT CL MICRO [Concomitant]
  6. SETRTALINE [Concomitant]
  7. ALENDRONATE [Concomitant]
     Active Substance: ALENDRONATE SODIUM
  8. CETIRIZINE [Concomitant]
     Active Substance: CETIRIZINE HYDROCHLORIDE
  9. OCALIVA [Suspect]
     Active Substance: OBETICHOLIC ACID
     Indication: HYPERTENSION
     Route: 048
     Dates: start: 20171227
  10. LOSARTAN. [Concomitant]
     Active Substance: LOSARTAN
  11. OXYCOD APAP [Concomitant]
  12. URSODIOL. [Concomitant]
     Active Substance: URSODIOL
  13. PENICILLN [Concomitant]
  14. CALCIUM [Concomitant]
     Active Substance: CALCIUM
  15. ALENDRONATE [Concomitant]
     Active Substance: ALENDRONATE SODIUM

REACTIONS (2)
  - Hepatic rupture [None]
  - Drug dose omission [None]

NARRATIVE: CASE EVENT DATE: 20180402
